FAERS Safety Report 19747824 (Version 1)
Quarter: 2021Q3

REPORT INFORMATION
  Report Type: Spontaneous
  Country: US (occurrence: US)
  Receive Date: 20210826
  Receipt Date: 20210826
  Transmission Date: 20211014
  Serious: Yes (Hospitalization, Other)
  Sender: FDA-Public Use
  Company Number: US-AUROBINDO-AUR-APL-2021-035618

PATIENT
  Age: 25 Year
  Sex: Female

DRUGS (9)
  1. AMIKACIN. [Concomitant]
     Active Substance: AMIKACIN
     Indication: PSEUDOMONAS INFECTION
     Dosage: UNK
     Route: 065
  2. CEFEPIME [Suspect]
     Active Substance: CEFEPIME HYDROCHLORIDE
     Indication: PSEUDOMONAS INFECTION
     Dosage: 2 GRAM, ONCE A DAY
     Route: 065
  3. CEFEPIME [Suspect]
     Active Substance: CEFEPIME HYDROCHLORIDE
     Indication: DEVICE RELATED INFECTION
  4. AMIKACIN. [Concomitant]
     Active Substance: AMIKACIN
     Indication: BACTERAEMIA
  5. MEROPENEM. [Suspect]
     Active Substance: MEROPENEM
     Indication: BACTERAEMIA
     Dosage: UNK
     Route: 065
  6. CEFEPIME [Suspect]
     Active Substance: CEFEPIME HYDROCHLORIDE
     Indication: BACTERAEMIA
  7. MEROPENEM. [Suspect]
     Active Substance: MEROPENEM
     Indication: DEVICE RELATED INFECTION
  8. MEROPENEM. [Suspect]
     Active Substance: MEROPENEM
     Indication: PSEUDOMONAS INFECTION
  9. AMIKACIN. [Concomitant]
     Active Substance: AMIKACIN
     Indication: DEVICE RELATED INFECTION

REACTIONS (1)
  - Drug resistance [Not Recovered/Not Resolved]
